FAERS Safety Report 7647225-X (Version None)
Quarter: 2011Q3

REPORT INFORMATION
  Report Type: 
  Country: None (occurrence: None)
  Receive Date: 20110801
  Receipt Date: 20110720
  Transmission Date: 20111222
  Serious: Yes (Other)
  Sender: FDA-Public Use
  Company Number: JP-PFIZER INC-2011164201

PATIENT
  Age: 15 Year
  Sex: Female

DRUGS (4)
  1. FLUDARABINE PHOSPHATE [Concomitant]
     Dosage: 30 MG/M2/DAY, UNK
  2. MYLOTARG [Suspect]
     Indication: ACUTE MYELOID LEUKAEMIA
     Dosage: 3 MG/M2, CYCLIC DAY 6
  3. NEUPOGEN [Suspect]
     Dosage: 200 UG/M2/DAY, UNK
  4. CYTARABINE [Suspect]
     Indication: ACUTE MYELOID LEUKAEMIA
     Dosage: 2000 MG/M2/DAY, UNK

REACTIONS (4)
  - NEUTROPHIL COUNT DECREASED [None]
  - FEBRILE NEUTROPENIA [None]
  - VENOOCCLUSIVE LIVER DISEASE [None]
  - CYSTITIS HAEMORRHAGIC [None]
